FAERS Safety Report 5832969-2 (Version None)
Quarter: 2008Q3

REPORT INFORMATION
  Report Type: 
  Country: None (occurrence: None)
  Receive Date: 20080804
  Receipt Date: 20080724
  Transmission Date: 20090109
  Serious: Yes (Hospitalization)
  Sender: FDA-Public Use
  Company Number: US-AMGEN-US296945

PATIENT
  Sex: Male

DRUGS (14)
  1. PANITUMUMAB [Suspect]
     Indication: COLORECTAL CANCER
     Route: 042
     Dates: start: 20071018
  2. POTASSIUM CHLORIDE [Concomitant]
     Route: 048
  3. IMODIUM [Concomitant]
  4. SERTRALINE [Concomitant]
     Route: 048
  5. MEGACE [Concomitant]
     Route: 048
  6. PERCOCET [Concomitant]
     Route: 048
  7. ATIVAN [Concomitant]
  8. MARINOL [Concomitant]
     Route: 048
  9. DICYCLOMINE HYDROCHLORIDE [Concomitant]
     Route: 048
  10. IRINOTECAN HCL [Concomitant]
     Dates: start: 20071018
  11. FLUOROURACIL [Concomitant]
     Dates: start: 20071018
  12. LEUCOVORIN CALCIUM [Concomitant]
     Dates: start: 20071018
  13. VITAMIN K TAB [Concomitant]
     Dates: start: 20080711, end: 20080711
  14. COUMADIN [Concomitant]
     Dates: start: 20080701, end: 20080711

REACTIONS (2)
  - DEEP VEIN THROMBOSIS [None]
  - PNEUMONIA [None]
